FAERS Safety Report 6820924-5 (Version None)
Quarter: 2010Q3

REPORT INFORMATION
  Report Type: 
  Country: None (occurrence: None)
  Receive Date: 20100707
  Receipt Date: 20090619
  Transmission Date: 20110219
  Serious: No
  Sender: FDA-Public Use
  Company Number: US-PFIZER INC-2005152477

PATIENT
  Sex: Female
  Weight: 63.5 kg

DRUGS (2)
  1. ZOLOFT [Suspect]
     Indication: DEPRESSION
     Dosage: UNK
     Route: 048
     Dates: start: 19950101
  2. ZOLOFT [Suspect]
     Indication: ANXIETY

REACTIONS (6)
  - ANXIETY [None]
  - ASTHENOPIA [None]
  - DIPLOPIA [None]
  - HEADACHE [None]
  - NERVOUSNESS [None]
  - VISUAL IMPAIRMENT [None]
